FAERS Safety Report 7411070-0 (Version None)
Quarter: 2011Q2

REPORT INFORMATION
  Report Type: 
  Country: None (occurrence: None)
  Receive Date: 20110413
  Receipt Date: 20110407
  Transmission Date: 20111010
  Serious: Yes (Hospitalization)
  Sender: FDA-Public Use
  Company Number: JP-ASTELLAS-2011JP002083

PATIENT
  Age: 61 Year
  Sex: Female
  Weight: 53 kg

DRUGS (5)
  1. BETAMETHASONE [Concomitant]
     Indication: INTERSTITIAL LUNG DISEASE
  2. BETAMETHASONE [Concomitant]
     Indication: DERMATOMYOSITIS
     Dosage: 1.5 MG, UNKNOWN/D
     Route: 048
     Dates: start: 20030101
  3. PROGRAF [Suspect]
     Indication: INTERSTITIAL LUNG DISEASE
  4. PROGRAF [Suspect]
     Indication: DERMATOMYOSITIS
     Dosage: 3 MG, UNKNOWN/D
     Route: 048
     Dates: start: 20030101
  5. INSULIN [Concomitant]
     Indication: DIABETES MELLITUS
     Dosage: 13 IU, UNKNOWN/D
     Route: 058
     Dates: start: 20070101

REACTIONS (4)
  - OFF LABEL USE [None]
  - ENTEROCOLITIS [None]
  - SEPTIC SHOCK [None]
  - CHOLECYSTITIS ACUTE [None]
